FAERS Safety Report 20930409 (Version 1)
Quarter: 2022Q2

REPORT INFORMATION
  Report Type: Spontaneous
  Country: US (occurrence: US)
  Receive Date: 20220608
  Receipt Date: 20220608
  Transmission Date: 20220721
  Serious: No
  Sender: FDA-Public Use
  Company Number: US-BAUSCH-BL-2022-014047

PATIENT
  Age: 69 Year
  Sex: Male
  Weight: 74.910 kg

DRUGS (3)
  1. ZIRGAN [Suspect]
     Active Substance: GANCICLOVIR
     Indication: Herpes zoster
     Route: 047
  2. ZIRGAN [Suspect]
     Active Substance: GANCICLOVIR
     Indication: Herpes ophthalmic
  3. VALTREX [Concomitant]
     Active Substance: VALACYCLOVIR HYDROCHLORIDE
     Indication: Product used for unknown indication

REACTIONS (1)
  - Vision blurred [Not Recovered/Not Resolved]
